FAERS Safety Report 10506618 (Version 1)
Quarter: 2014Q3

REPORT INFORMATION
  Report Type: Spontaneous
  Country: US (occurrence: None)
  Receive Date: 20140915
  Receipt Date: 20140915
  Transmission Date: 20150326
  Serious: Yes (Other)
  Sender: FDA-Public Use
  Company Number: 2014-US-004110

PATIENT
  Age: 11 Year
  Sex: Female

DRUGS (3)
  1. XYREM [Suspect]
     Active Substance: SODIUM OXYBATE
     Indication: NARCOLEPSY
     Route: 048
     Dates: start: 201108, end: 2011
  2. CELEXA (CITALOPRAM HYDROBROIDE) [Concomitant]
  3. NUVIGIL [Concomitant]
     Active Substance: ARMODAFINIL

REACTIONS (3)
  - Off label use [None]
  - Depression [None]
  - Weight increased [None]

NARRATIVE: CASE EVENT DATE: 2011
